FAERS Safety Report 24241773 (Version 3)
Quarter: 2024Q3

REPORT INFORMATION
  Report Type: Spontaneous
  Country: US (occurrence: US)
  Receive Date: 20240823
  Receipt Date: 20240911
  Transmission Date: 20241016
  Serious: Yes (Other)
  Sender: MERCK
  Company Number: US-009507513-2407USA014734

PATIENT
  Age: 36 Year
  Sex: Male

DRUGS (18)
  1. WELIREG [Suspect]
     Active Substance: BELZUTIFAN
     Indication: Renal cell carcinoma
     Dosage: 120 MILLIGRAM, QD
     Route: 048
     Dates: end: 20240613
  2. WELIREG [Suspect]
     Active Substance: BELZUTIFAN
     Indication: Renal cancer
     Dosage: 120 MILLIGRAM, QD
     Route: 048
  3. CABOMETYX [Suspect]
     Active Substance: CABOZANTINIB S-MALATE
     Indication: Renal cell carcinoma
     Dosage: 40 MILLIGRAM, QD
     Route: 048
     Dates: start: 20240508, end: 20240612
  4. CABOMETYX [Suspect]
     Active Substance: CABOZANTINIB S-MALATE
     Indication: Renal cancer
     Dosage: 40 MILLIGRAM, QD
     Route: 048
     Dates: start: 20240629
  5. LOMOTIL [Concomitant]
     Active Substance: ATROPINE SULFATE\DIPHENOXYLATE HYDROCHLORIDE
  6. ROBAXIN [Concomitant]
     Active Substance: METHOCARBAMOL
  7. XGEVA [Concomitant]
     Active Substance: DENOSUMAB
  8. AMOXICILLIN [Concomitant]
     Active Substance: AMOXICILLIN
  9. METRONIDAZOLE [Concomitant]
     Active Substance: METRONIDAZOLE
  10. LORATADINE [Concomitant]
     Active Substance: LORATADINE
  11. ULTRAM [Concomitant]
     Active Substance: TRAMADOL HYDROCHLORIDE
  12. CHLORAMPHENICOL [Concomitant]
     Active Substance: CHLORAMPHENICOL
  13. METHYLPREDNISOLONE ACETATE [Concomitant]
     Active Substance: METHYLPREDNISOLONE ACETATE
  14. CARMOL [UREA] [Concomitant]
  15. PRED + [Concomitant]
  16. MYDRIACYL [Concomitant]
     Active Substance: TROPICAMIDE
  17. IMODIUM [Concomitant]
     Active Substance: LOPERAMIDE HYDROCHLORIDE
  18. HERBALS\TURMERIC [Concomitant]
     Active Substance: HERBALS\TURMERIC

REACTIONS (26)
  - Colitis [Unknown]
  - Uveitis [Unknown]
  - Metastases to central nervous system [Unknown]
  - Metastases to bone [Unknown]
  - Blood thyroid stimulating hormone increased [Unknown]
  - Blood calcium decreased [Not Recovered/Not Resolved]
  - Dry skin [Recovered/Resolved]
  - Fatigue [Not Recovered/Not Resolved]
  - Rash [Not Recovered/Not Resolved]
  - Dehydration [Unknown]
  - Urinary tract infection [Recovering/Resolving]
  - Acute sinusitis [Recovered/Resolved]
  - Pain in jaw [Not Recovered/Not Resolved]
  - Feeding disorder [Recovering/Resolving]
  - Swelling face [Recovered/Resolved]
  - Ageusia [Recovered/Resolved]
  - Trismus [Unknown]
  - Lymphadenopathy [Unknown]
  - Parotid gland enlargement [Unknown]
  - Sleep disorder [Recovering/Resolving]
  - Weight fluctuation [Unknown]
  - Cancer pain [Unknown]
  - Conjunctivitis [Recovering/Resolving]
  - Abdominal discomfort [Not Recovered/Not Resolved]
  - Diarrhoea [Not Recovered/Not Resolved]
  - Central nervous system lesion [Unknown]

NARRATIVE: CASE EVENT DATE: 20240101
